FAERS Safety Report 5101397-X (Version None)
Quarter: 2006Q3

REPORT INFORMATION
  Report Type: 
  Country: None (occurrence: None)
  Receive Date: 20060911
  Receipt Date: 20060823
  Transmission Date: 20061208
  Serious: Yes (Hospitalization)
  Sender: FDA-Public Use
  Company Number: US-GLAXOSMITHKLINE-A0617986A

PATIENT
  Age: 5 Year
  Sex: Male
  Weight: 11.1 kg

DRUGS (6)
  1. LAMICTAL [Suspect]
     Indication: EPILEPSY
     Route: 048
     Dates: start: 20060601, end: 20060817
  2. PREVACID [Concomitant]
  3. PULMICORT [Concomitant]
  4. ZOLADEX [Concomitant]
  5. TOPAMAX [Concomitant]
  6. UNSPECIFIED MEDICATION [Concomitant]

REACTIONS (1)
  - CHOREA [None]
